FAERS Safety Report 7953895-9 (Version None)
Quarter: 2011Q4

REPORT INFORMATION
  Report Type: 
  Country: None (occurrence: None)
  Receive Date: 20111129
  Receipt Date: 20111129
  Transmission Date: 20120403
  Serious: Yes (Other)
  Sender: FDA-Public Use
  Company Number: 1022556-2011-00065

PATIENT
  Sex: Female

DRUGS (1)
  1. ACT FLUORIDE RINSE - GENERIC [Suspect]
     Dosage: ORAL RINSE
     Route: 048

REACTIONS (3)
  - TOOTH LOSS [None]
  - BONE NEOPLASM MALIGNANT [None]
  - FLUOROSIS DENTAL [None]
